FAERS Safety Report 6348943-6 (Version None)
Quarter: 2009Q3

REPORT INFORMATION
  Report Type: 
  Country: None (occurrence: None)
  Receive Date: 20090911
  Receipt Date: 20090902
  Transmission Date: 20100115
  Serious: Yes (Other)
  Sender: FDA-Public Use
  Company Number: US-ASTRAZENECA-2009SE07439

PATIENT
  Age: 20099 Day
  Sex: Female
  Weight: 102.5 kg

DRUGS (1)
  1. ARIMIDEX [Suspect]
     Indication: BREAST CANCER
     Route: 048
     Dates: start: 20090601, end: 20090803

REACTIONS (4)
  - ARTHRITIS [None]
  - BLOOD PRESSURE INCREASED [None]
  - NAUSEA [None]
  - PANIC ATTACK [None]
